FAERS Safety Report 8416475 (Version 4)
Quarter: 2014Q2

REPORT INFORMATION
  Report Type: Spontaneous
  Country: US (occurrence: US)
  Receive Date: 20120220
  Receipt Date: 20131024
  Transmission Date: 20141212
  Serious: No
  Sender: FDA-Public Use
  Company Number: US-PFIZER INC-2011302990

PATIENT
  Age: 46 Year
  Sex: Female

DRUGS (11)
  1. BENZYLPENICILLIN POTASSIUM [Suspect]
     Dosage: UNK
  2. ERYTHROMYCIN [Suspect]
     Dosage: UNK
  3. MORPHINE SULFATE [Suspect]
     Dosage: UNK
  4. ACETYLSALICYLIC ACID [Suspect]
     Dosage: UNK
  5. CODEINE [Suspect]
     Dosage: UNK
  6. FENTANYL [Suspect]
     Dosage: UNK
  7. DEMEROL [Suspect]
     Dosage: UNK
  8. REGLAN [Suspect]
     Dosage: UNK
  9. DILAUDID [Suspect]
     Dosage: UNK
  10. CIMETIDINE [Suspect]
     Dosage: UNK
  11. FLUNARIZINE [Suspect]
     Dosage: UNK

REACTIONS (3)
  - Drug hypersensitivity [Unknown]
  - Headache [Unknown]
  - Nausea [Unknown]
